FAERS Safety Report 22289276 (Version 3)
Quarter: 2023Q2

REPORT INFORMATION
  Report Type: Report from Study
  Country: CA (occurrence: CA)
  Receive Date: 20230505
  Receipt Date: 20230630
  Transmission Date: 20230722
  Serious: Yes (Hospitalization)
  Sender: FDA-Public Use
  Company Number: CA-PFIZER INC-PV202300072736

PATIENT
  Age: 62 Year
  Sex: Female
  Weight: 58.9 kg

DRUGS (23)
  1. XALKORI [Suspect]
     Active Substance: CRIZOTINIB
     Indication: Uveal melanoma
     Dosage: 200 MG, BID (C1D8)
     Route: 048
     Dates: start: 20221215, end: 20221215
  2. XALKORI [Suspect]
     Active Substance: CRIZOTINIB
     Dosage: 200 MG, BID (C1D15)
     Route: 048
     Dates: start: 20221222, end: 20221222
  3. XALKORI [Suspect]
     Active Substance: CRIZOTINIB
     Dosage: 200 MG BID (C2D1)
     Route: 048
     Dates: start: 20230105, end: 20230105
  4. XALKORI [Suspect]
     Active Substance: CRIZOTINIB
     Dosage: 200 MG BID (C3D1)
     Route: 048
     Dates: start: 20230202, end: 20230202
  5. XALKORI [Suspect]
     Active Substance: CRIZOTINIB
     Dosage: 200 MG, BID (C4D1)
     Route: 048
     Dates: start: 20230302, end: 20230328
  6. XALKORI [Suspect]
     Active Substance: CRIZOTINIB
     Dosage: UNK
  7. DAROVASERTIB [Suspect]
     Active Substance: DAROVASERTIB
     Indication: Uveal melanoma
     Dosage: 200 MG, BID (C1D1)
     Route: 048
     Dates: start: 20221208, end: 20221208
  8. DAROVASERTIB [Suspect]
     Active Substance: DAROVASERTIB
     Dosage: 200 MG, BID (C1D8)
     Route: 048
     Dates: start: 20221215, end: 20221215
  9. DAROVASERTIB [Suspect]
     Active Substance: DAROVASERTIB
     Dosage: 200 MG, BID (C1D15)
     Route: 048
     Dates: start: 20221222, end: 20221222
  10. DAROVASERTIB [Suspect]
     Active Substance: DAROVASERTIB
     Dosage: 200 MG BID (C2D1)
     Route: 048
     Dates: start: 20230105, end: 20230105
  11. DAROVASERTIB [Suspect]
     Active Substance: DAROVASERTIB
     Dosage: 200 MG BID (C3D1)
     Route: 048
     Dates: start: 20230202, end: 20230202
  12. DAROVASERTIB [Suspect]
     Active Substance: DAROVASERTIB
     Dosage: 200 MG, BID (C4D1)
     Route: 048
     Dates: start: 20230302, end: 20230328
  13. ONDANSETRON [Concomitant]
     Active Substance: ONDANSETRON
     Dosage: UNK
     Dates: start: 20221208
  14. SENNOSIDES A AND B [Concomitant]
     Active Substance: SENNOSIDES A AND B
     Dosage: UNK
     Dates: start: 20221212
  15. LOPERAMIDE [Concomitant]
     Active Substance: LOPERAMIDE
     Dosage: UNK
     Dates: start: 20221219
  16. MINOCYCLINE [Concomitant]
     Active Substance: MINOCYCLINE HYDROCHLORIDE
     Dosage: UNK
     Dates: start: 20221229
  17. MIDODRINE [Concomitant]
     Active Substance: MIDODRINE
     Dosage: UNK
     Dates: start: 20221229
  18. VITAMIN D3 [Concomitant]
     Active Substance: CHOLECALCIFEROL
     Dosage: UNK
     Dates: start: 2022
  19. FUROSEMIDE [Concomitant]
     Active Substance: FUROSEMIDE
     Dosage: UNK
     Dates: start: 20230111
  20. ACETAMINOPHEN [Concomitant]
     Active Substance: ACETAMINOPHEN
     Dosage: UNK
     Dates: start: 1980
  21. PANTOPRAZOLE [Concomitant]
     Active Substance: PANTOPRAZOLE
     Dosage: UNK
     Dates: start: 20230301
  22. LEVOTHYROXINE [Concomitant]
     Active Substance: LEVOTHYROXINE
     Dosage: UNK
     Dates: start: 20230316
  23. ATOVAQUONE [Concomitant]
     Active Substance: ATOVAQUONE
     Dosage: UNK
     Dates: start: 20230405

REACTIONS (1)
  - Hepatitis [Recovered/Resolved]

NARRATIVE: CASE EVENT DATE: 20230417
